FAERS Safety Report 20606961 (Version 1)
Quarter: 2022Q1

REPORT INFORMATION
  Report Type: Spontaneous
  Country: US (occurrence: US)
  Receive Date: 20220317
  Receipt Date: 20220317
  Transmission Date: 20220423
  Serious: Yes (Hospitalization)
  Sender: FDA-Public Use
  Company Number: US-PFIZER INC-2019001536

PATIENT
  Age: 71 Year
  Sex: Male

DRUGS (2)
  1. RAPAMUNE [Suspect]
     Active Substance: SIROLIMUS
     Indication: Liver transplant
     Dosage: 2 MG, DAILY(2 TABLETS DAILY)/QTY: 180
     Route: 048
  2. RAPAMUNE [Suspect]
     Active Substance: SIROLIMUS
     Dosage: 2 MG, DAILY (RAPAMUNE 1 MG, 2 TABLETS DAILY)

REACTIONS (4)
  - Hip fracture [Unknown]
  - Road traffic accident [Unknown]
  - Off label use [Unknown]
  - Wrong patient [Unknown]
